FAERS Safety Report 25413956 (Version 1)
Quarter: 2025Q2

REPORT INFORMATION
  Report Type: Report from Study
  Country: EG (occurrence: EG)
  Receive Date: 20250609
  Receipt Date: 20250609
  Transmission Date: 20250717
  Serious: Yes (Other)
  Sender: NOVARTIS
  Company Number: EG-002147023-NVSC2025EG090748

PATIENT
  Sex: Female
  Weight: 95 kg

DRUGS (2)
  1. COSENTYX [Suspect]
     Active Substance: SECUKINUMAB
     Indication: Psoriasis
     Dosage: 150 MG, QMO, 2 PENS EVERY 2 WEEKS
     Route: 058
  2. COSENTYX [Suspect]
     Active Substance: SECUKINUMAB
     Indication: Product used for unknown indication
     Dosage: 300 MG, QMO, 2 PENS EVERY MONTH
     Route: 058

REACTIONS (3)
  - Pain [Recovering/Resolving]
  - Nasopharyngitis [Recovering/Resolving]
  - Alopecia [Recovering/Resolving]
